FAERS Safety Report 26090270 (Version 1)
Quarter: 2025Q4

REPORT INFORMATION
  Report Type: Spontaneous
  Country: US (occurrence: US)
  Receive Date: 20251126
  Receipt Date: 20251126
  Transmission Date: 20260118
  Serious: Yes (Life-Threatening, Hospitalization, Other)
  Sender: RISING PHARMACEUTICALS
  Company Number: US-RISINGPHARMA-US-2025RISLIT00595

PATIENT
  Age: 72 Year
  Sex: Female
  Weight: 350 kg

DRUGS (4)
  1. ZOLPIDEM TARTRATE [Suspect]
     Active Substance: ZOLPIDEM TARTRATE
     Indication: Product used for unknown indication
     Route: 048
  2. GABAPENTIN [Suspect]
     Active Substance: GABAPENTIN
     Indication: Product used for unknown indication
     Route: 048
  3. BACLOFEN [Suspect]
     Active Substance: BACLOFEN
     Indication: Product used for unknown indication
     Dosage: NUMEROUS LOOSE BACLOFEN TAB LETS
     Route: 048
  4. TRAZODONE [Suspect]
     Active Substance: TRAZODONE HYDROCHLORIDE
     Indication: Product used for unknown indication
     Route: 065

REACTIONS (17)
  - Atrial fibrillation [Recovered/Resolved]
  - Hypoxia [Recovered/Resolved]
  - Loss of consciousness [Recovered/Resolved]
  - Deep vein thrombosis [Recovered/Resolved]
  - Hyperkalaemia [Recovered/Resolved]
  - Pneumothorax [Recovered/Resolved]
  - Electrocardiogram QRS complex prolonged [Recovered/Resolved]
  - Pneumonia [Recovered/Resolved]
  - Snoring [Recovered/Resolved]
  - Coma [Recovered/Resolved]
  - Bruxism [Recovered/Resolved]
  - Vomiting [Recovered/Resolved]
  - Heart rate decreased [Recovered/Resolved]
  - Bradycardia [Recovered/Resolved]
  - Oxygen saturation decreased [Recovered/Resolved]
  - Hypotension [Recovered/Resolved]
  - Intentional overdose [Unknown]
